FAERS Safety Report 20619747 (Version 2)
Quarter: 2022Q1

REPORT INFORMATION
  Report Type: Spontaneous
  Country: US (occurrence: US)
  Receive Date: 20220322
  Receipt Date: 20220331
  Transmission Date: 20220423
  Serious: Yes (Other)
  Sender: FDA-Public Use
  Company Number: US-CIPLA (EU) LIMITED-2022US01775

PATIENT

DRUGS (4)
  1. ALBUTEROL\IPRATROPIUM [Suspect]
     Active Substance: ALBUTEROL\IPRATROPIUM
     Indication: Chronic obstructive pulmonary disease
     Dosage: UNK, NDC 69097-173-64, FROM PAST 6 OR 7 YEARS
     Route: 065
  2. ALBUTEROL\IPRATROPIUM [Suspect]
     Active Substance: ALBUTEROL\IPRATROPIUM
     Dosage: UNK, NDC: 69097-840-53  5YEARS AGO,- 4TIMES A DAY AND MAYBE 5
     Route: 065
  3. ALBUTEROL\IPRATROPIUM [Suspect]
     Active Substance: ALBUTEROL\IPRATROPIUM
     Dosage: UNK, NDC 69097-173-64, FROM PAST 3 YEARS
     Route: 065
  4. LISINOPRIL [Concomitant]
     Active Substance: LISINOPRIL
     Indication: Hypertension
     Dosage: 10 MILLIGRAM, QD
     Route: 065

REACTIONS (6)
  - Drug ineffective [Unknown]
  - Drug effect less than expected [Unknown]
  - Product quality issue [Unknown]
  - Productive cough [Unknown]
  - Anxiety [Unknown]
  - Product availability issue [Unknown]
